FAERS Safety Report 5952283-4 (Version None)
Quarter: 2008Q4

REPORT INFORMATION
  Report Type: 
  Country: None (occurrence: None)
  Receive Date: 20081113
  Receipt Date: 20081103
  Transmission Date: 20090506
  Serious: Yes (Other)
  Sender: FDA-Public Use
  Company Number: US-WATSON-2008-06542

PATIENT
  Sex: Female

DRUGS (5)
  1. FENTANYL-25 [Suspect]
     Indication: AUTONOMIC NEUROPATHY
     Dosage: 1 PATCH, Q 3 DAYS
     Route: 062
     Dates: start: 20081103
  2. FENTANYL-25 [Suspect]
     Dosage: 1 PATCH, Q 3 DAYS
     Route: 062
     Dates: start: 20080101, end: 20081103
  3. PHOSLO [Concomitant]
     Indication: RENAL FAILURE
     Dosage: 2 TABLET, WITH MEALS
     Route: 048
     Dates: start: 20060101
  4. PROCRIT [Concomitant]
     Indication: ANAEMIA
     Dosage: 1 INJECTION Q 2 WEEKS, PRN
     Route: 058
     Dates: start: 20080601
  5. IRON INJECTION [Concomitant]
     Indication: IRON DEFICIENCY ANAEMIA
     Dosage: UNK
     Route: 042

REACTIONS (4)
  - DRUG EFFECT INCREASED [None]
  - RENAL FAILURE CHRONIC [None]
  - SOMNOLENCE [None]
  - WITHDRAWAL SYNDROME [None]
